FAERS Safety Report 19025634 (Version 1)
Quarter: 2021Q1

REPORT INFORMATION
  Report Type: Spontaneous
  Country: NO (occurrence: NO)
  Receive Date: 20210318
  Receipt Date: 20210318
  Transmission Date: 20210420
  Serious: Yes (Other)
  Sender: FDA-Public Use
  Company Number: NO-TEVA-2021-NO-1891050

PATIENT
  Age: 36 Year
  Sex: Female
  Weight: 102 kg

DRUGS (10)
  1. AJOVY [Suspect]
     Active Substance: FREMANEZUMAB-VFRM
     Indication: MIGRAINE
     Dosage: ONE INJECTION ONCE A MONTH
     Route: 065
     Dates: start: 20201110, end: 20210211
  2. LITHIONIT DEPOTTAB 42 MG [Concomitant]
     Indication: BIPOLAR DISORDER
     Dosage: 2 TABL KVELD
  3. CERAZETTE TAB 75 MIKROG [Concomitant]
     Indication: CONTRACEPTION
     Dosage: 1 TABL DAGLIG
  4. RISPERDAL TAB 1 MG [Concomitant]
     Dosage: 1 TABL KVELD
     Dates: start: 2012
  5. VITAMIN D [Concomitant]
     Active Substance: VITAMIN D NOS
  6. B VITAMIN [Concomitant]
  7. AERIUS TAB 5 MG [Concomitant]
     Indication: HYPERSENSITIVITY
     Dosage: 1 TABL DAGLIG
  8. IRON [Concomitant]
     Active Substance: IRON
  9. WELLBUTRIN RETARD TAB MODIF FRISETTING 300 MG [Concomitant]
     Dosage: 300 MG EN GANG DAGLIG
     Dates: start: 2012
  10. RITALIN KAPS MODIF FRISETTING 20 MG [Concomitant]
     Indication: ATTENTION DEFICIT HYPERACTIVITY DISORDER
     Dosage: 1 TABL MORGEN

REACTIONS (8)
  - Taste disorder [Not Recovered/Not Resolved]
  - Weight increased [Unknown]
  - Suicidal ideation [Recovering/Resolving]
  - Influenza like illness [Recovering/Resolving]
  - Fatigue [Unknown]
  - Flatulence [Unknown]
  - Depression [Recovering/Resolving]
  - Fatigue [Recovering/Resolving]

NARRATIVE: CASE EVENT DATE: 202011
